FAERS Safety Report 5255327-0 (Version None)
Quarter: 2007Q1

REPORT INFORMATION
  Report Type: 
  Country: None (occurrence: None)
  Receive Date: 20070305
  Receipt Date: 20070228
  Transmission Date: 20070707
  Serious: Yes (Hospitalization)
  Sender: FDA-Public Use
  Company Number: JP-JPN-A20020580

PATIENT
  Age: 32 Year
  Sex: Female

DRUGS (1)
  1. PAXIL [Suspect]
     Indication: PANIC DISORDER
     Dosage: 10MG PER DAY
     Route: 048
     Dates: start: 20011115, end: 20011121

REACTIONS (8)
  - ABDOMINAL PAIN UPPER [None]
  - EATING DISORDER [None]
  - FAECES DISCOLOURED [None]
  - GASTRIC ULCER [None]
  - HYPERVENTILATION [None]
  - LOSS OF CONSCIOUSNESS [None]
  - NAUSEA [None]
  - PANIC ATTACK [None]
